FAERS Safety Report 17479135 (Version 1)
Quarter: 2020Q1

REPORT INFORMATION
  Report Type: Report from Study
  Country: GB (occurrence: GB)
  Receive Date: 20200228
  Receipt Date: 20200228
  Transmission Date: 20200409
  Serious: Yes (Hospitalization)
  Sender: FDA-Public Use
  Company Number: GB-JNJFOC-20191242878

PATIENT
  Sex: Male

DRUGS (8)
  1. OMEPRAZOLE. [Concomitant]
     Active Substance: OMEPRAZOLE
  2. BISOPROLOL [Concomitant]
     Active Substance: BISOPROLOL
  3. EPLERENONE. [Concomitant]
     Active Substance: EPLERENONE
  4. STELARA [Suspect]
     Active Substance: USTEKINUMAB
     Indication: PSORIATIC ARTHROPATHY
     Dosage: ON WEEK 0 AS DIRECTED
     Route: 058
     Dates: start: 20191007
  5. FUROSEMIDE. [Concomitant]
     Active Substance: FUROSEMIDE
  6. LOSARTAN. [Concomitant]
     Active Substance: LOSARTAN
  7. PREDNISOLONE. [Concomitant]
     Active Substance: PREDNISOLONE
  8. CALCIFEROL                         /00107901/ [Concomitant]
     Active Substance: ERGOCALCIFEROL

REACTIONS (2)
  - Sepsis [Unknown]
  - Animal bite [Unknown]

NARRATIVE: CASE EVENT DATE: 2019
